FAERS Safety Report 11485347 (Version 1)
Quarter: 2015Q3

REPORT INFORMATION
  Report Type: Spontaneous
  Country: US (occurrence: US)
  Receive Date: 20150909
  Receipt Date: 20150909
  Transmission Date: 20151125
  Serious: Yes (Hospitalization, Other)
  Sender: FDA-Public Use
  Company Number: US-GLAXOSMITHKLINE-US2015GSK125325

PATIENT
  Age: 71 Year
  Sex: Female

DRUGS (1)
  1. ADVAIR DISKUS [Suspect]
     Active Substance: FLUTICASONE PROPIONATE\SALMETEROL XINAFOATE
     Indication: PRODUCT USED FOR UNKNOWN INDICATION
     Dosage: ^2 X 50^
     Dates: start: 201505

REACTIONS (5)
  - Hospitalisation [Unknown]
  - Intentional product use issue [Unknown]
  - Chest pain [Unknown]
  - Cough [Recovering/Resolving]
  - Secretion discharge [Recovering/Resolving]
